FAERS Safety Report 17081411 (Version 1)
Quarter: 2019Q4

REPORT INFORMATION
  Report Type: Spontaneous
  Country: US (occurrence: US)
  Receive Date: 20191126
  Receipt Date: 20191126
  Transmission Date: 20200122
  Serious: Yes (Other)
  Sender: FDA-Public Use
  Company Number: None

PATIENT
  Age: 77 Year
  Sex: Female
  Weight: 71.1 kg

DRUGS (10)
  1. DEXAMETHASONE. [Concomitant]
     Active Substance: DEXAMETHASONE
  2. FAMOTIDINE. [Concomitant]
     Active Substance: FAMOTIDINE
  3. CLONAZEPAM. [Concomitant]
     Active Substance: CLONAZEPAM
  4. METOPROLOL SUCCINATE ER [Concomitant]
     Active Substance: METOPROLOL SUCCINATE
  5. MELOXICAM. [Concomitant]
     Active Substance: MELOXICAM
  6. AFINITOR [Suspect]
     Active Substance: EVEROLIMUS
     Indication: BREAST CANCER
     Route: 048
     Dates: start: 20190805, end: 20191126
  7. ALEVE PM [Concomitant]
     Active Substance: DIPHENHYDRAMINE HYDROCHLORIDE\NAPROXEN SODIUM
  8. LIDOCAINE-PRILOCAINE [Concomitant]
     Active Substance: LIDOCAINE\PRILOCAINE
  9. LISINOPRIL. [Concomitant]
     Active Substance: LISINOPRIL
  10. EXEMESTANE. [Suspect]
     Active Substance: EXEMESTANE
     Indication: BREAST CANCER
     Route: 048
     Dates: start: 20190621, end: 20191126

REACTIONS (1)
  - Disease progression [None]

NARRATIVE: CASE EVENT DATE: 20191126
